FAERS Safety Report 5353483-7 (Version None)
Quarter: 2007Q2

REPORT INFORMATION
  Report Type: 
  Country: None (occurrence: None)
  Receive Date: 20070612
  Receipt Date: 20070605
  Transmission Date: 20071010
  Serious: Yes (Other)
  Sender: FDA-Public Use
  Company Number: PHEH2007US08321

PATIENT
  Age: 55 Year
  Sex: Female
  Weight: 74.829 kg

DRUGS (5)
  1. TEKTURNA [Suspect]
     Indication: HYPERTENSION
     Dosage: 150 MG, QD
  2. CARDIZEM [Concomitant]
     Indication: HYPERTENSION
  3. TOPROL-XL [Concomitant]
     Indication: HYPERTENSION
  4. CARDURA                                 /IRE/ [Concomitant]
     Indication: HYPERTENSION
  5. DIOVAN [Suspect]
     Indication: HYPERTENSION

REACTIONS (3)
  - ASTHMA [None]
  - FLUSHING [None]
  - WHEEZING [None]
